FAERS Safety Report 18750047 (Version 2)
Quarter: 2021Q1

REPORT INFORMATION
  Report Type: Spontaneous
  Country: FR (occurrence: FR)
  Receive Date: 20210118
  Receipt Date: 20210204
  Transmission Date: 20210419
  Serious: Yes (Other)
  Sender: FDA-Public Use
  Company Number: FR-AMGEN-FRASP2021004987

PATIENT
  Age: 57 Year
  Sex: Female
  Weight: 50 kg

DRUGS (11)
  1. TOUJEO [Suspect]
     Active Substance: INSULIN GLARGINE
     Indication: INSULIN-REQUIRING TYPE 2 DIABETES MELLITUS
     Dosage: 12 INTERNATIONAL UNIT, QD
     Route: 058
  2. CIMETIDINE [Suspect]
     Active Substance: CIMETIDINE
     Indication: PROPHYLAXIS OF NAUSEA AND VOMITING
     Dosage: 1000 MILLIGRAM, CYCLICAL
     Route: 048
  3. CETIRIZINE [Suspect]
     Active Substance: CETIRIZINE HYDROCHLORIDE
     Indication: PROPHYLAXIS OF NAUSEA AND VOMITING
     Dosage: 10 MILLIGRAM, CYCLICAL
     Route: 048
  4. SKENAN [Suspect]
     Active Substance: MORPHINE SULFATE
     Indication: PAIN
     Dosage: 1 DOSAGE FORM (30 MG, MICROGRANULES), QD, 1?0?2
     Route: 048
  5. OMEPRAZOLE. [Suspect]
     Active Substance: OMEPRAZOLE
     Indication: GASTROOESOPHAGEAL REFLUX DISEASE
     Dosage: 20 MILLIGRAM, QD
     Route: 048
  6. TRASTUZUMAB. [Suspect]
     Active Substance: TRASTUZUMAB
     Indication: BREAST CANCER METASTATIC
     Dosage: 294 MILLIGRAM, CYCLICAL
     Route: 041
     Dates: start: 20200302
  7. PACLITAXEL. [Suspect]
     Active Substance: PACLITAXEL
     Indication: BREAST CANCER METASTATIC
     Dosage: 114 MILLIGRAM, CYCLICAL
     Route: 041
     Dates: start: 20200309, end: 20200825
  8. PREDNISOLONE. [Suspect]
     Active Substance: PREDNISOLONE
     Indication: PROPHYLAXIS OF NAUSEA AND VOMITING
     Dosage: 40 MILLIGRAM, CYCLICAL
     Route: 048
  9. PERTUZUMAB. [Suspect]
     Active Substance: PERTUZUMAB
     Indication: BREAST CANCER METASTATIC
     Dosage: 420 MILLIGRAM, CYCLICAL
     Route: 041
     Dates: start: 20200302
  10. CAPECITABINE. [Suspect]
     Active Substance: CAPECITABINE
     Indication: BREAST CANCER METASTATIC
     Dosage: 10000 MILLIGRAM, 21 DAYS
     Route: 065
  11. ACTISKENAN [Suspect]
     Active Substance: MORPHINE SULFATE
     Indication: PAIN
     Dosage: 1 DOSAGE FORM, QD
     Route: 048

REACTIONS (3)
  - Visual acuity reduced [Not Recovered/Not Resolved]
  - Keratitis [Not Recovered/Not Resolved]
  - Off label use [Unknown]

NARRATIVE: CASE EVENT DATE: 20200302
